FAERS Safety Report 7589422-8 (Version None)
Quarter: 2011Q3

REPORT INFORMATION
  Report Type: 
  Country: None (occurrence: None)
  Receive Date: 20110705
  Receipt Date: 20110624
  Transmission Date: 20111222
  Serious: Yes (Hospitalization, Other)
  Sender: FDA-Public Use
  Company Number: CA-JNJFOC-20110406548

PATIENT
  Sex: Female

DRUGS (7)
  1. DIVALPROEX SODIUM [Concomitant]
     Dosage: 500 MG MORNING, 1000 MG BEFORE SLEEP
     Route: 048
     Dates: start: 20110413
  2. RISPERDAL CONSTA [Suspect]
     Route: 030
  3. BENZTROPINE MESYLATE [Concomitant]
     Indication: EXTRAPYRAMIDAL DISORDER
     Route: 048
     Dates: start: 20110413
  4. RISPERDAL CONSTA [Suspect]
     Indication: SCHIZOAFFECTIVE DISORDER
     Route: 030
  5. LORAZEPAM [Concomitant]
     Route: 048
     Dates: start: 20110413
  6. QUETIAPINE [Concomitant]
     Route: 048
     Dates: start: 20110413
  7. LEVOTHYROXINE SODIUM [Concomitant]
     Route: 048
     Dates: start: 20110414

REACTIONS (1)
  - SCHIZOAFFECTIVE DISORDER [None]
